FAERS Safety Report 8859928 (Version 1)
Quarter: 2012Q4

REPORT INFORMATION
  Report Type: 
  Country: FI (occurrence: FI)
  Receive Date: 20121025
  Receipt Date: 20121025
  Transmission Date: 20130627
  Serious: Yes (Hospitalization)
  Sender: FDA-Public Use
  Company Number: FI-SANOFI-AVENTIS-2012SA075419

PATIENT
  Age: 42 Year
  Sex: Female

DRUGS (3)
  1. KETEK [Suspect]
     Indication: SINUSITIS
     Route: 048
     Dates: start: 20120903, end: 20120905
  2. SALAZOPYRIN [Suspect]
     Indication: ARTHROPATHY
     Dosage: strength: 500 mg
     Route: 048
     Dates: start: 20120706, end: 20120902
  3. KEFEXIN [Suspect]
     Indication: SINUSITIS
     Dosage: strength: 750 mg
     Route: 048
     Dates: start: 20120905, end: 20120910

REACTIONS (16)
  - Drug reaction with eosinophilia and systemic symptoms [Not Recovered/Not Resolved]
  - Nausea [Not Recovered/Not Resolved]
  - Pruritus [Not Recovered/Not Resolved]
  - Rash erythematous [Not Recovered/Not Resolved]
  - Rash [Not Recovered/Not Resolved]
  - Pyrexia [Not Recovered/Not Resolved]
  - Alanine aminotransferase increased [Not Recovered/Not Resolved]
  - Blood alkaline phosphatase increased [Not Recovered/Not Resolved]
  - Gamma-glutamyltransferase increased [Not Recovered/Not Resolved]
  - C-reactive protein increased [Not Recovered/Not Resolved]
  - General physical health deterioration [Not Recovered/Not Resolved]
  - Jaundice [Not Recovered/Not Resolved]
  - Eosinophilia [Not Recovered/Not Resolved]
  - Stomatitis [Not Recovered/Not Resolved]
  - Lymphadenopathy [Not Recovered/Not Resolved]
  - Abdominal pain upper [Not Recovered/Not Resolved]
